FAERS Safety Report 10250646 (Version 1)
Quarter: 2014Q2

REPORT INFORMATION
  Report Type: Other
  Country: AU (occurrence: AU)
  Receive Date: 20140620
  Receipt Date: 20140620
  Transmission Date: 20141212
  Serious: Yes (Hospitalization, Other)
  Sender: FDA-Public Use
  Company Number: AU-BRISTOL-MYERS SQUIBB COMPANY-21046693

PATIENT
  Age: 68 Year
  Sex: Female

DRUGS (7)
  1. METFORMIN HCL [Suspect]
     Indication: TYPE 2 DIABETES MELLITUS
     Dosage: TOTAL DOSE:1500MG
  2. IRBESARTAN [Suspect]
     Indication: HYPERTENSION
  3. GLICLAZIDE [Suspect]
     Indication: TYPE 2 DIABETES MELLITUS
     Dosage: MR
  4. ISOPHANE INSULIN [Suspect]
     Indication: TYPE 2 DIABETES MELLITUS
     Dosage: 1DF: 50UNITS
  5. MELOXICAM [Suspect]
  6. INDAPAMIDE [Suspect]
     Indication: HYPERTENSION
  7. AMLODIPINE [Suspect]
     Indication: HYPERTENSION

REACTIONS (4)
  - Large intestine polyp [Recovered/Resolved]
  - Renal failure acute [Unknown]
  - Lactic acidosis [Recovered/Resolved]
  - Diarrhoea [None]
